FAERS Safety Report 8404517-4 (Version None)
Quarter: 2012Q2

REPORT INFORMATION
  Report Type: 
  Country: None (occurrence: None)
  Receive Date: 20120601
  Receipt Date: 20120523
  Transmission Date: 20120825
  Serious: Yes (Other)
  Sender: FDA-Public Use
  Company Number: JP-VERTEX PHARMACEUTICALS INC.-AE-2012-007790

PATIENT
  Age: 69 Year
  Sex: Male

DRUGS (12)
  1. CANDESARTAN CILEXETIL [Concomitant]
     Route: 048
  2. RHYTHMY [Concomitant]
     Route: 048
     Dates: start: 20120504
  3. TELAVIC (TELAPREVIR) [Suspect]
     Indication: HEPATITIS C
     Route: 048
     Dates: start: 20120406, end: 20120518
  4. REBETOL [Concomitant]
     Route: 048
     Dates: start: 20120417, end: 20120427
  5. REBETOL [Concomitant]
     Route: 048
     Dates: start: 20120428, end: 20120517
  6. PEG-INTRON [Concomitant]
     Indication: HEPATITIS C
     Route: 051
     Dates: start: 20120406, end: 20120511
  7. NORVASC [Concomitant]
     Route: 048
  8. REBETOL [Concomitant]
     Indication: HEPATITIS C
     Route: 048
     Dates: start: 20120406, end: 20120416
  9. MARZULENE-S [Concomitant]
     Route: 048
     Dates: start: 20120427
  10. ALLOPURINOL [Concomitant]
     Route: 048
     Dates: start: 20120428, end: 20120503
  11. ALLOPURINOL [Concomitant]
     Route: 048
     Dates: start: 20120504
  12. DOGMATYL [Concomitant]
     Route: 048
     Dates: start: 20120511

REACTIONS (2)
  - RENAL IMPAIRMENT [None]
  - ANAEMIA [None]
